FAERS Safety Report 24138122 (Version 1)
Quarter: 2024Q3

REPORT INFORMATION
  Report Type: Spontaneous
  Country: CN (occurrence: CN)
  Receive Date: 20240725
  Receipt Date: 20240725
  Transmission Date: 20241017
  Serious: Yes (Hospitalization)
  Sender: NOVARTIS
  Company Number: CN-002147023-NVSC2024CN152380

PATIENT
  Age: 9 Year
  Sex: Female
  Weight: 38 kg

DRUGS (1)
  1. OXCARBAZEPINE [Suspect]
     Active Substance: OXCARBAZEPINE
     Indication: Epilepsy
     Dosage: 6 ML, BID
     Route: 048
     Dates: start: 20240703, end: 20240711

REACTIONS (3)
  - Rash pruritic [Recovered/Resolved]
  - Breath sounds abnormal [Unknown]
  - Pruritus [Unknown]

NARRATIVE: CASE EVENT DATE: 20240711
